FAERS Safety Report 17719882 (Version 1)
Quarter: 2020Q2

REPORT INFORMATION
  Report Type: Report from Study
  Country: CA (occurrence: CA)
  Receive Date: 20200428
  Receipt Date: 20200428
  Transmission Date: 20200714
  Serious: Yes (Hospitalization)
  Sender: FDA-Public Use
  Company Number: CA-JNJFOC-20200429641

PATIENT
  Age: 17 Year
  Sex: Female
  Weight: 64.4 kg

DRUGS (14)
  1. FLUOXETINE [Concomitant]
     Active Substance: FLUOXETINE HYDROCHLORIDE
  2. LANSOPRAZOLE. [Concomitant]
     Active Substance: LANSOPRAZOLE
  3. PREDNISONE. [Concomitant]
     Active Substance: PREDNISONE
  4. OMEGA 3 6 9                        /01334101/ [Concomitant]
     Active Substance: FISH OIL
  5. CLOBAZAM. [Concomitant]
     Active Substance: CLOBAZAM
  6. DEPO-PROVERA [Concomitant]
     Active Substance: MEDROXYPROGESTERONE ACETATE
  7. INFLIXIMAB, RECOMBINANT [Suspect]
     Active Substance: INFLIXIMAB
     Indication: INFLAMMATORY BOWEL DISEASE
     Route: 042
  8. VITAMIN C [Concomitant]
     Active Substance: ASCORBIC ACID
  9. AZATHIOPRINE. [Concomitant]
     Active Substance: AZATHIOPRINE
  10. FOLIC ACID. [Concomitant]
     Active Substance: FOLIC ACID
  11. 5-ASA [Concomitant]
     Active Substance: MESALAMINE
     Route: 048
  12. AMITRIPTYLINE [Concomitant]
     Active Substance: AMITRIPTYLINE
  13. VITAMIN D                          /00107901/ [Concomitant]
     Active Substance: ERGOCALCIFEROL
  14. CALCIUM [Concomitant]
     Active Substance: CALCIUM

REACTIONS (1)
  - Conversion disorder [Not Recovered/Not Resolved]

NARRATIVE: CASE EVENT DATE: 20200216
